FAERS Safety Report 21461339 (Version 2)
Quarter: 2022Q4

REPORT INFORMATION
  Report Type: Report from Study
  Country: CA (occurrence: CA)
  Receive Date: 20221015
  Receipt Date: 20221107
  Transmission Date: 20230113
  Serious: Yes (Death, Other)
  Sender: FDA-Public Use
  Company Number: CA-ABBVIE-4155857

PATIENT
  Sex: Female

DRUGS (1)
  1. VENCLEXTA [Suspect]
     Active Substance: VENETOCLAX
     Indication: Acute myeloid leukaemia
     Dosage: STRENGTH 100 MILLIGRAM
     Route: 048
     Dates: start: 20201214

REACTIONS (3)
  - Haemorrhage intracranial [Fatal]
  - Thrombocytopenia [Fatal]
  - Fall [Unknown]
